FAERS Safety Report 9400737 (Version 1)
Quarter: 2013Q3

REPORT INFORMATION
  Report Type: Spontaneous
  Country: US (occurrence: None)
  Receive Date: 20130712
  Receipt Date: 20130712
  Transmission Date: 20140515
  Serious: Yes (Other)
  Sender: FDA-Public Use
  Company Number: None

PATIENT
  Sex: Male
  Weight: 86.18 kg

DRUGS (2)
  1. SERTRALINE HYDROCHLORIDE [Suspect]
     Indication: DEPRESSION
     Route: 048
  2. SERTRALINE HYDROCHLORIDE [Suspect]
     Indication: AUTISM
     Route: 048

REACTIONS (3)
  - Vomiting [None]
  - Product substitution issue [None]
  - Drug intolerance [None]
